FAERS Safety Report 6902314-X (Version None)
Quarter: 2010Q3

REPORT INFORMATION
  Report Type: 
  Country: None (occurrence: None)
  Receive Date: 20100803
  Receipt Date: 20080515
  Transmission Date: 20110219
  Serious: No
  Sender: FDA-Public Use
  Company Number: US-PFIZER INC-2008043028

PATIENT
  Sex: Male
  Weight: 99.8 kg

DRUGS (4)
  1. LYRICA [Suspect]
     Indication: NEURALGIA
     Route: 048
  2. NEURONTIN [Suspect]
     Indication: NEURALGIA
  3. SOMA [Concomitant]
  4. OXYCONTIN [Concomitant]

REACTIONS (4)
  - ANGER [None]
  - DRUG DOSE OMISSION [None]
  - PAIN [None]
  - SOMNOLENCE [None]
